FAERS Safety Report 15240680 (Version 1)
Quarter: 2018Q3

REPORT INFORMATION
  Report Type: Spontaneous
  Country: US (occurrence: US)
  Receive Date: 20180710
  Receipt Date: 20180710
  Transmission Date: 20181010
  Serious: Yes (Other)
  Sender: FDA-Public Use
  Company Number: None

PATIENT
  Age: 63 Year
  Sex: Female
  Weight: 67.5 kg

DRUGS (7)
  1. NEXIUM [Concomitant]
     Active Substance: ESOMEPRAZOLE MAGNESIUM
  2. TEQUIN [Suspect]
     Active Substance: GATIFLOXACIN
     Indication: PREOPERATIVE CARE
     Dosage: ?          QUANTITY:1 UNK ? UNKNOWN;?
     Route: 042
     Dates: start: 20180706, end: 20180706
  3. XANAX [Concomitant]
     Active Substance: ALPRAZOLAM
  4. ASPIRIN. [Concomitant]
     Active Substance: ASPIRIN
  5. TYLENOL [Concomitant]
     Active Substance: ACETAMINOPHEN
  6. DIOVAN [Concomitant]
     Active Substance: VALSARTAN
  7. LIPITOR [Concomitant]
     Active Substance: ATORVASTATIN CALCIUM

REACTIONS (5)
  - Blood glucose increased [None]
  - Blood pressure increased [None]
  - Fatigue [None]
  - Blood glucose decreased [None]
  - Confusional state [None]

NARRATIVE: CASE EVENT DATE: 20180706
